FAERS Safety Report 16615032 (Version 1)
Quarter: 2019Q3

REPORT INFORMATION
  Report Type: Spontaneous
  Country: US (occurrence: US)
  Receive Date: 20190610
  Receipt Date: 20190610
  Transmission Date: 20191004
  Serious: No
  Sender: FDA-Public Use
  Company Number: None

PATIENT
  Age: 58 Year
  Sex: Female

DRUGS (1)
  1. COSENTYX [Suspect]
     Active Substance: SECUKINUMAB
     Indication: PSORIASIS
     Dosage: ?          OTHER FREQUENCY:OTHER;?
     Route: 058
     Dates: start: 201904

REACTIONS (5)
  - Nasal congestion [None]
  - Chest discomfort [None]
  - Head discomfort [None]
  - Rhinorrhoea [None]
  - Oropharyngeal pain [None]

NARRATIVE: CASE EVENT DATE: 20190610
